FAERS Safety Report 9933560 (Version 1)
Quarter: 2014Q1

REPORT INFORMATION
  Report Type: Spontaneous
  Country: US (occurrence: US)
  Receive Date: 20140228
  Receipt Date: 20140228
  Transmission Date: 20141002
  Serious: No
  Sender: FDA-Public Use
  Company Number: US-MYLANLABS-2013S1024234

PATIENT
  Age: 25 Year
  Sex: Female
  Weight: 58.97 kg

DRUGS (4)
  1. AMNESTEEM CAPSULES [Suspect]
     Indication: ACNE
     Route: 048
     Dates: start: 20130430, end: 201309
  2. AMNESTEEM CAPSULES [Suspect]
     Indication: ACNE
     Route: 048
     Dates: start: 20130430, end: 201309
  3. PEPCID [Concomitant]
  4. NEXIUM [Concomitant]

REACTIONS (1)
  - Headache [Recovered/Resolved]
